FAERS Safety Report 23598406 (Version 2)
Quarter: 2024Q1

REPORT INFORMATION
  Report Type: Spontaneous
  Country: ES (occurrence: ES)
  Receive Date: 20240305
  Receipt Date: 20240321
  Transmission Date: 20240409
  Serious: Yes (Other)
  Sender: FDA-Public Use
  Company Number: ES-THERAMEX-2024000333

PATIENT
  Age: 56 Year
  Sex: Female
  Weight: 50 kg

DRUGS (1)
  1. TERIPARATIDE [Suspect]
     Active Substance: TERIPARATIDE
     Indication: Osteoporosis
     Dosage: 1 INJECTION/24 HOURS; DAILY; IN THE ABDOMEN ?DAILY ONGOING
     Route: 058
     Dates: start: 20240219

REACTIONS (6)
  - Spinal cord compression [Recovered/Resolved]
  - Discomfort [Recovered/Resolved]
  - Spinal pain [Recovered/Resolved]
  - Cold sweat [Recovered/Resolved]
  - Nocturnal dyspnoea [Recovered/Resolved]
  - Limb discomfort [Recovered/Resolved]

NARRATIVE: CASE EVENT DATE: 20240219
